FAERS Safety Report 4363304-7 (Version None)
Quarter: 2004Q2

REPORT INFORMATION
  Report Type: 
  Country: None (occurrence: None)
  Receive Date: 20040517
  Receipt Date: 20040206
  Transmission Date: 20050107
  Serious: No
  Sender: FDA-Public Use
  Company Number: S04-USA-00427-01

PATIENT
  Age: 83 Year
  Sex: Male

DRUGS (12)
  1. NAMENDA [Suspect]
     Indication: DEMENTIA ALZHEIMER'S TYPE
     Dosage: 5 MG QD PO
     Route: 048
     Dates: start: 20040204, end: 20040210
  2. NAMENDA [Suspect]
     Indication: DEMENTIA ALZHEIMER'S TYPE
     Dosage: 10 MG QD PO
     Route: 048
     Dates: start: 20040211, end: 20040217
  3. NAMENDA [Suspect]
     Indication: DEMENTIA ALZHEIMER'S TYPE
     Dosage: 15 MG QD PO
     Route: 048
     Dates: start: 20040218
  4. DEPAKOTE [Concomitant]
  5. IMDUR [Concomitant]
  6. METOPROLOL TARTRATE [Concomitant]
  7. CARDIAZEM [Concomitant]
  8. FOLIC ACID [Concomitant]
  9. OMEGA 3 [Concomitant]
  10. VITAMIN E [Concomitant]
  11. MULTI-VITAMINS [Concomitant]
  12. PLAVIX [Concomitant]

REACTIONS (5)
  - AGITATION [None]
  - DECREASED APPETITE [None]
  - FATIGUE [None]
  - MOOD ALTERED [None]
  - STOMACH DISCOMFORT [None]
